FAERS Safety Report 23207327 (Version 1)
Quarter: 2023Q4

REPORT INFORMATION
  Report Type: Spontaneous
  Country: US (occurrence: US)
  Receive Date: 20231120
  Receipt Date: 20231120
  Transmission Date: 20240110
  Serious: Yes (Other)
  Sender: FDA-Public Use
  Company Number: US-BRACCO-2023US00077

PATIENT
  Age: 48 Year
  Sex: Male

DRUGS (3)
  1. LUMASON [Suspect]
     Active Substance: SULFUR HEXAFLUORIDE
     Indication: Echocardiogram
     Dosage: 1 ML, SINGLE
     Route: 042
     Dates: start: 20221220, end: 20221220
  2. LUMASON [Suspect]
     Active Substance: SULFUR HEXAFLUORIDE
     Indication: Echocardiogram
     Dosage: 1 ML, SINGLE
     Route: 042
     Dates: start: 20221220, end: 20221220
  3. LUMASON [Suspect]
     Active Substance: SULFUR HEXAFLUORIDE
     Indication: Echocardiogram
     Dosage: 1 ML, SINGLE
     Route: 042
     Dates: start: 20221220, end: 20221220

REACTIONS (5)
  - Unresponsive to stimuli [Recovered/Resolved]
  - Malaise [Recovered/Resolved]
  - Flushing [Recovered/Resolved]
  - Snoring [Recovered/Resolved]
  - Incontinence [Recovered/Resolved]

NARRATIVE: CASE EVENT DATE: 20221220
